FAERS Safety Report 25445372 (Version 1)
Quarter: 2025Q2

REPORT INFORMATION
  Report Type: Spontaneous
  Country: ES (occurrence: ES)
  Receive Date: 20250617
  Receipt Date: 20250617
  Transmission Date: 20250717
  Serious: Yes (Hospitalization, Other)
  Sender: AUROBINDO
  Company Number: ES-AstrazenecaRSG-7003-D926QC00001(Prod)000002

PATIENT
  Age: 61 Year
  Sex: Female
  Weight: 100 kg

DRUGS (13)
  1. PACLITAXEL [Suspect]
     Active Substance: PACLITAXEL
     Indication: Triple negative breast cancer
     Route: 042
     Dates: start: 20240627, end: 20241002
  2. PACLITAXEL [Suspect]
     Active Substance: PACLITAXEL
     Indication: HER2 negative breast cancer
  3. CARBOPLATIN [Suspect]
     Active Substance: CARBOPLATIN
     Indication: Triple negative breast cancer
     Route: 042
     Dates: start: 20240626, end: 20241002
  4. CARBOPLATIN [Suspect]
     Active Substance: CARBOPLATIN
     Indication: HER2 negative breast cancer
  5. EPIRUBICIN [Suspect]
     Active Substance: EPIRUBICIN
     Indication: Triple negative breast cancer
     Route: 042
     Dates: start: 20241009, end: 20241224
  6. EPIRUBICIN [Suspect]
     Active Substance: EPIRUBICIN
     Indication: HER2 negative breast cancer
  7. PEMBROLIZUMAB [Suspect]
     Active Substance: PEMBROLIZUMAB
     Indication: Triple negative breast cancer
     Route: 042
     Dates: start: 20240627, end: 20241009
  8. PEMBROLIZUMAB [Suspect]
     Active Substance: PEMBROLIZUMAB
     Indication: HER2 negative breast cancer
  9. CYCLOPHOSPHAMIDE [Suspect]
     Active Substance: CYCLOPHOSPHAMIDE
     Indication: Triple negative breast cancer
     Route: 042
     Dates: start: 20241009, end: 20241224
  10. CYCLOPHOSPHAMIDE [Suspect]
     Active Substance: CYCLOPHOSPHAMIDE
     Indication: HER2 negative breast cancer
  11. PREDNISONE [Concomitant]
     Active Substance: PREDNISONE
     Indication: Immune-mediated lung disease
     Dosage: 50 MILLIGRAM, ONCE A DAY
     Route: 048
     Dates: start: 20241118
  12. PREDNISONE [Concomitant]
     Active Substance: PREDNISONE
     Dosage: 50 MILLIGRAM, ONCE A DAY
     Route: 048
     Dates: start: 20241104, end: 20241110
  13. PREDNISONE [Concomitant]
     Active Substance: PREDNISONE
     Dosage: 50 MILLIGRAM, ONCE A DAY
     Route: 048
     Dates: start: 20241111, end: 20241117

REACTIONS (1)
  - Immune-mediated lung disease [Recovered/Resolved]

NARRATIVE: CASE EVENT DATE: 20241025
